FAERS Safety Report 9119820 (Version 5)
Quarter: 2013Q3

REPORT INFORMATION
  Report Type: Spontaneous
  Country: US (occurrence: US)
  Receive Date: 20130226
  Receipt Date: 20130905
  Transmission Date: 20140515
  Serious: Yes (Life-Threatening, Hospitalization)
  Sender: FDA-Public Use
  Company Number: US-PFIZER INC-2013068640

PATIENT
  Age: 73 Year
  Sex: Female

DRUGS (4)
  1. IBUPROFEN [Suspect]
     Indication: FRACTURE PAIN
     Dosage: 2400 MG, FIRST DAY OF INJURY
     Route: 048
  2. IBUPROFEN [Suspect]
     Indication: HUMERUS FRACTURE
     Dosage: 2000 MG, SECOND DAY
     Route: 048
  3. LISINOPRIL [Concomitant]
     Indication: DIABETES MELLITUS
     Dosage: UNK
     Route: 065
  4. METFORMIN [Concomitant]
     Indication: DIABETES MELLITUS
     Dosage: UNK
     Route: 065

REACTIONS (3)
  - Overdose [Unknown]
  - Renal failure acute [Unknown]
  - Hyperkalaemia [Unknown]
